FAERS Safety Report 5998290-7 (Version None)
Quarter: 2008Q4

REPORT INFORMATION
  Report Type: 
  Country: None (occurrence: None)
  Receive Date: 20081213
  Receipt Date: 20080627
  Transmission Date: 20090506
  Serious: No
  Sender: FDA-Public Use
  Company Number: US-AMGEN-KDL290672

PATIENT
  Sex: Male

DRUGS (2)
  1. ENBREL [Suspect]
     Indication: PSORIATIC ARTHROPATHY
     Route: 058
     Dates: start: 20080625
  2. ENBREL [Suspect]
     Indication: PSORIASIS

REACTIONS (3)
  - DYSPNOEA [None]
  - IRRITABILITY [None]
  - PARAESTHESIA [None]
